FAERS Safety Report 15066129 (Version 1)
Quarter: 2018Q2

REPORT INFORMATION
  Report Type: Spontaneous
  Country: US (occurrence: US)
  Receive Date: 20180626
  Receipt Date: 20180626
  Transmission Date: 20180711
  Serious: Yes (Hospitalization)
  Sender: FDA-Public Use
  Company Number: US-AJANTA PHARMA USA INC.-2049955

PATIENT
  Sex: Female

DRUGS (1)
  1. DULOXETINE (ANDA 208706) [Suspect]
     Active Substance: DULOXETINE
     Indication: HERPES ZOSTER
     Dates: end: 201805

REACTIONS (13)
  - Disorientation [Unknown]
  - Off label use [Unknown]
  - Tinnitus [Unknown]
  - Abdominal pain upper [Unknown]
  - Loss of consciousness [Unknown]
  - Balance disorder [Unknown]
  - Vomiting [Unknown]
  - Dry eye [Unknown]
  - Vision blurred [Unknown]
  - Diarrhoea [Unknown]
  - Pollakiuria [Unknown]
  - Hospitalisation [Unknown]
  - Hypertension [Unknown]

NARRATIVE: CASE EVENT DATE: 2017
